FAERS Safety Report 5349585-1 (Version None)
Quarter: 2007Q2

REPORT INFORMATION
  Report Type: 
  Country: None (occurrence: None)
  Receive Date: 20070607
  Receipt Date: 20070529
  Transmission Date: 20071010
  Serious: Yes (Other)
  Sender: FDA-Public Use
  Company Number: US-ELI_LILLY_AND_COMPANY-US200705007271

PATIENT
  Age: 82 Year
  Sex: Female

DRUGS (3)
  1. FORTEO [Suspect]
     Indication: BONE DENSITY DECREASED
     Dosage: UNK, UNK
     Dates: start: 20060101
  2. OGEN [Concomitant]
     Dates: end: 20060101
  3. PROVERA [Concomitant]
     Dates: end: 20060101

REACTIONS (3)
  - BREAST CANCER [None]
  - BREAST MASS [None]
  - DIABETES MELLITUS [None]
